FAERS Safety Report 13547099 (Version 2)
Quarter: 2018Q4

REPORT INFORMATION
  Report Type: Spontaneous
  Country: US (occurrence: US)
  Receive Date: 20170515
  Receipt Date: 20181126
  Transmission Date: 20190204
  Serious: Yes (Other)
  Sender: FDA-Public Use
  Company Number: US-SA-2017SA056699

PATIENT
  Age: 62 Year
  Sex: Female
  Weight: 77.8 kg

DRUGS (13)
  1. CYTARABINE. [Concomitant]
     Active Substance: CYTARABINE
     Dosage: 20 MG, BID
     Route: 058
     Dates: start: 20180328, end: 20180328
  2. DECADRON [Concomitant]
     Active Substance: DEXAMETHASONE
     Dosage: 10 MG, QD
     Route: 042
     Dates: start: 20180328, end: 20180328
  3. XYLOCAINE #1 [Concomitant]
     Active Substance: LIDOCAINE
     Dosage: 1 ML, 1X
     Route: 023
     Dates: start: 20170328, end: 20170403
  4. LOPRESSOR [Suspect]
     Active Substance: METOPROLOL TARTRATE
  5. NACL [Concomitant]
     Active Substance: SODIUM CHLORIDE
  6. ZYLOPRIM [Concomitant]
     Active Substance: ALLOPURINOL
  7. LOVENOX [Concomitant]
     Active Substance: ENOXAPARIN SODIUM
     Dosage: 40 MG, QD
     Route: 058
     Dates: start: 20180328, end: 20180403
  8. NORCO [Concomitant]
     Active Substance: ACETAMINOPHEN\HYDROCODONE BITARTRATE
     Dosage: 1 MG, QD
     Route: 048
     Dates: start: 20170328, end: 20170403
  9. CLOLAR [Suspect]
     Active Substance: CLOFARABINE
     Indication: ACUTE MYELOID LEUKAEMIA
     Dosage: 38 MG,QD
     Route: 042
     Dates: start: 20170328, end: 20170329
  10. ZOFRAN [ONDANSETRON HYDROCHLORIDE] [Concomitant]
     Dosage: 8 MG, QD
     Route: 042
     Dates: start: 20170328, end: 20170401
  11. METOPROLOL. [Suspect]
     Active Substance: METOPROLOL
     Indication: HYPERTENSION
     Dosage: 100 MG,QD
     Route: 065
  12. TYLENOL 8HR [Concomitant]
     Active Substance: ACETAMINOPHEN
     Dosage: 650 MG, QD
     Route: 048
     Dates: start: 20180328, end: 20180328
  13. BENADRYL A [Concomitant]
     Active Substance: DIPHENHYDRAMINE HYDROCHLORIDE
     Dosage: 50 MG, QD
     Route: 048
     Dates: start: 20180328, end: 20180328

REACTIONS (2)
  - Ventricular tachycardia [Recovered/Resolved]
  - Product preparation error [Unknown]

NARRATIVE: CASE EVENT DATE: 20170328
